FAERS Safety Report 8404095-X (Version None)
Quarter: 2012Q2

REPORT INFORMATION
  Report Type: 
  Country: None (occurrence: None)
  Receive Date: 20120601
  Receipt Date: 20120523
  Transmission Date: 20120825
  Serious: Yes (Hospitalization)
  Sender: FDA-Public Use
  Company Number: US-US-EMD SERONO, INC.-7129930

PATIENT
  Sex: Female

DRUGS (3)
  1. EFFEXOR [Concomitant]
     Indication: PRODUCT USED FOR UNKNOWN INDICATION
  2. REBIF [Suspect]
     Indication: MULTIPLE SCLEROSIS
     Route: 058
     Dates: start: 20111004
  3. REBIF [Suspect]
     Route: 058
     Dates: start: 20120416

REACTIONS (4)
  - ABDOMINAL DISCOMFORT [None]
  - MULTIPLE SCLEROSIS RELAPSE [None]
  - INCORRECT DOSE ADMINISTERED [None]
  - HEADACHE [None]
